FAERS Safety Report 13004684 (Version 1)
Quarter: 2016Q4

REPORT INFORMATION
  Report Type: Spontaneous
  Country: US (occurrence: US)
  Receive Date: 20161207
  Receipt Date: 20161207
  Transmission Date: 20170207
  Serious: Yes (Death, Hospitalization, Other)
  Sender: FDA-Public Use
  Company Number: US-CLINIGEN GROUP PLC/ CLINIGEN HEALTHCARE LTD-E2B_00005542

PATIENT
  Age: 46 Year
  Sex: Female
  Weight: 38.5 kg

DRUGS (9)
  1. CIPRO [Concomitant]
     Active Substance: CIPROFLOXACIN HYDROCHLORIDE
     Dosage: DOSE: 750 MG TOTAL DAILY DOSE: 1500 MG
     Route: 048
  2. FOSCAVIR [Suspect]
     Active Substance: FOSCARNET SODIUM
     Dosage: DOSE: 3000 MG TOTAL DAILY DOSE: 12000 MG
     Route: 042
     Dates: start: 19950309
  3. POTASSIUM CHLORIDE. [Concomitant]
     Active Substance: POTASSIUM CHLORIDE
     Indication: HYPOKALAEMIA
     Route: 048
  4. BIAXIN [Concomitant]
     Active Substance: CLARITHROMYCIN
     Dosage: DOSE: 500 MG TOTAL DAILY DOSE: 1000 MG
     Route: 048
  5. GANCICLOVIR. [Concomitant]
     Active Substance: GANCICLOVIR
     Indication: CYTOMEGALOVIRUS CHORIORETINITIS
     Dosage: DOSE: 275 MG TOTAL DAILY DOSE: 550 MG
     Route: 042
     Dates: start: 19950301, end: 19950309
  6. PENTAMIDINE [Concomitant]
     Active Substance: PENTAMIDINE
     Route: 055
     Dates: end: 19950411
  7. FOSCAVIR [Suspect]
     Active Substance: FOSCARNET SODIUM
     Indication: CYTOMEGALOVIRUS CHORIORETINITIS
     Dosage: DOSE: 4000 MG TOTAL DAILY DOSE: 4000 MG
     Route: 042
  8. GANCICLOVIR. [Concomitant]
     Active Substance: GANCICLOVIR
     Route: 042
     Dates: start: 19950512
  9. NYSTATIN. [Concomitant]
     Active Substance: NYSTATIN
     Route: 048

REACTIONS (3)
  - Hypokalaemia [Not Recovered/Not Resolved]
  - Infection [Unknown]
  - Nephrogenic diabetes insipidus [Fatal]

NARRATIVE: CASE EVENT DATE: 19950408
